FAERS Safety Report 8165469-8 (Version None)
Quarter: 2012Q1

REPORT INFORMATION
  Report Type: 
  Country: None (occurrence: None)
  Receive Date: 20120227
  Receipt Date: 20110801
  Transmission Date: 20120608
  Serious: No
  Sender: FDA-Public Use
  Company Number: US-MYLANLABS-2011S1008584

PATIENT
  Sex: Female

DRUGS (6)
  1. ASPIRIN [Concomitant]
  2. FLAX [Concomitant]
  3. METOPROLOL TARTRATE [Suspect]
     Indication: ARRHYTHMIA
     Route: 048
     Dates: start: 20070101
  4. METOPROLOL TARTRATE [Suspect]
     Route: 048
     Dates: start: 20070101
  5. VITAMIN D [Concomitant]
  6. IBUPROFEN (ADVIL) [Concomitant]

REACTIONS (8)
  - COELIAC DISEASE [None]
  - PERSONALITY CHANGE [None]
  - CONSTIPATION [None]
  - THERAPEUTIC RESPONSE UNEXPECTED [None]
  - FATIGUE [None]
  - ASTHENIA [None]
  - PSORIASIS [None]
  - GASTROINTESTINAL HYPOMOTILITY [None]
